FAERS Safety Report 10253794 (Version 1)
Quarter: 2014Q2

REPORT INFORMATION
  Report Type: Spontaneous
  Country: US (occurrence: US)
  Receive Date: 20140623
  Receipt Date: 20140623
  Transmission Date: 20141212
  Serious: No
  Sender: FDA-Public Use
  Company Number: US-ZOGENIX, INC.-2011ZX000522

PATIENT
  Age: 39 Year
  Sex: Female
  Weight: 99.88 kg

DRUGS (5)
  1. SUMAVEL DOSEPRO [Suspect]
     Indication: MIGRAINE
  2. SAVELLA [Concomitant]
     Indication: FIBROMYALGIA
  3. AMITIZA [Concomitant]
     Indication: IRRITABLE BOWEL SYNDROME
  4. TOPAMAX [Concomitant]
     Indication: MIGRAINE
  5. INDERAL [Concomitant]
     Indication: TREMOR

REACTIONS (3)
  - Device malfunction [Recovered/Resolved]
  - Accidental exposure to product [Recovered/Resolved]
  - No adverse event [Recovered/Resolved]
